FAERS Safety Report 19130087 (Version 1)
Quarter: 2021Q2

REPORT INFORMATION
  Report Type: Spontaneous
  Country: US (occurrence: US)
  Receive Date: 20210414
  Receipt Date: 20210414
  Transmission Date: 20210717
  Serious: Yes (Hospitalization)
  Sender: FDA-Public Use
  Company Number: US-GLAND PHARMA LIMITED-2021US002990

PATIENT
  Age: 52 Year
  Sex: Female

DRUGS (5)
  1. OXALIPLATIN. [Suspect]
     Active Substance: OXALIPLATIN
     Dosage: 130 MG/M2 ON DAY 1
     Route: 042
  2. CAPECITABINE. [Concomitant]
     Active Substance: CAPECITABINE
     Dosage: 1000 MG/M2, BID ON DAYS 1?14, EVERY 21 DAYS
     Route: 048
  3. OXALIPLATIN. [Suspect]
     Active Substance: OXALIPLATIN
     Indication: COLON CANCER METASTATIC
     Dosage: 130 MG/M2 ON DAY 1
     Route: 042
  4. OXALIPLATIN. [Suspect]
     Active Substance: OXALIPLATIN
     Dosage: 85 MG/M2, Q2WEEKS
     Route: 042
  5. CAPECITABINE. [Concomitant]
     Active Substance: CAPECITABINE
     Indication: COLON CANCER METASTATIC
     Dosage: 1000 MG/M2, BID ON DAYS 1?14, EVERY 21 DAYS
     Route: 048

REACTIONS (11)
  - Dysaesthesia [Not Recovered/Not Resolved]
  - Dysarthria [Recovered/Resolved]
  - Grip strength decreased [Recovered/Resolved]
  - Slow response to stimuli [Recovered/Resolved]
  - Vision blurred [Recovered/Resolved]
  - Paraesthesia [Recovered/Resolved]
  - Hypertonia [Recovered/Resolved]
  - Tremor [Recovered/Resolved]
  - Peroneal nerve palsy [Recovered/Resolved]
  - Hypokinesia [Recovered/Resolved]
  - Sensory loss [Recovered/Resolved]
